FAERS Safety Report 7278006-7 (Version None)
Quarter: 2011Q1

REPORT INFORMATION
  Report Type: 
  Country: None (occurrence: None)
  Receive Date: 20110207
  Receipt Date: 20110126
  Transmission Date: 20110831
  Serious: Yes (Death, Other)
  Sender: FDA-Public Use
  Company Number: PHHY2011GB05784

PATIENT
  Age: 21 Year
  Sex: Male

DRUGS (2)
  1. DILTIAZEM HYDROCHLORIDE [Suspect]
     Dosage: 60 MG, 25 TABLETS
  2. PROPRANOLOL [Suspect]
     Dosage: 80 MG, 10 TABLETS

REACTIONS (11)
  - CARDIAC ARREST [None]
  - MYDRIASIS [None]
  - DRUG LEVEL ABOVE THERAPEUTIC [None]
  - DEPRESSED LEVEL OF CONSCIOUSNESS [None]
  - CARDIAC FAILURE ACUTE [None]
  - SUICIDE ATTEMPT [None]
  - BLOOD PRESSURE IMMEASURABLE [None]
  - PUPIL FIXED [None]
  - INTENTIONAL OVERDOSE [None]
  - GENERAL PHYSICAL HEALTH DETERIORATION [None]
  - HEART RATE DECREASED [None]
